FAERS Safety Report 20916398 (Version 1)
Quarter: 2022Q2

REPORT INFORMATION
  Report Type: Spontaneous
  Country: AT (occurrence: AT)
  Receive Date: 20220604
  Receipt Date: 20220604
  Transmission Date: 20220720
  Serious: Yes (Other)
  Sender: FDA-Public Use
  Company Number: AT-ROCHE-3098374

PATIENT
  Sex: Male

DRUGS (14)
  1. BENDAMUSTINE HYDROCHLORIDE [Suspect]
     Active Substance: BENDAMUSTINE HYDROCHLORIDE
     Indication: Follicular lymphoma
     Dosage: (1ST LINE SYSTEMIC TREATMENT)
     Route: 042
     Dates: start: 201611, end: 201905
  2. LENALIDOMIDE [Suspect]
     Active Substance: LENALIDOMIDE
     Indication: Follicular lymphoma
     Dosage: (3RD LINE SYSTEMIC TREATMENT)
     Route: 065
     Dates: start: 202201, end: 202202
  3. LENALIDOMIDE [Suspect]
     Active Substance: LENALIDOMIDE
     Dosage: (4TH LINE SYSTEMIC TREATMENT)
     Route: 065
     Dates: start: 20220208, end: 20220502
  4. GEMCITABINE [Suspect]
     Active Substance: GEMCITABINE
     Indication: Follicular lymphoma
     Dosage: (3RD LINE SYSTEMIC TREATMENT)
     Route: 065
     Dates: start: 202201, end: 202202
  5. GEMCITABINE [Suspect]
     Active Substance: GEMCITABINE
     Dosage: (3RD LINE SYSTEMIC TREATMENT)
     Route: 065
     Dates: start: 202201, end: 202202
  6. DOXORUBICIN HYDROCHLORIDE [Suspect]
     Active Substance: DOXORUBICIN HYDROCHLORIDE
     Indication: Product used for unknown indication
     Dosage: (2ND LINE SYSTEMIC TREATMENT)
     Route: 047
     Dates: start: 202107, end: 202201
  7. VINCRISTINE [Suspect]
     Active Substance: VINCRISTINE
     Indication: Product used for unknown indication
     Dosage: (2ND LINE SYSTEMIC TREATMENT)
     Route: 065
     Dates: start: 202107, end: 202201
  8. PREDNISONE [Suspect]
     Active Substance: PREDNISONE
     Indication: Product used for unknown indication
     Dosage: (2ND LINE SYSTEMIC TREATMENT)
     Route: 065
     Dates: start: 202107, end: 202201
  9. OXALIPLATIN [Suspect]
     Active Substance: OXALIPLATIN
     Indication: Follicular lymphoma
     Dosage: (3RD LINE SYSTEMIC TREATMENT)
     Route: 065
     Dates: start: 202201, end: 202202
  10. OXALIPLATIN [Suspect]
     Active Substance: OXALIPLATIN
     Dosage: UNK UNK, UNKNOWN FREQ. (3RD LINE SYSTEMIC TREATMENT)
     Route: 065
     Dates: start: 202201, end: 202202
  11. CYCLOPHOSPHAMIDE [Suspect]
     Active Substance: CYCLOPHOSPHAMIDE
     Indication: Product used for unknown indication
     Dosage: (2ND LINE SYSTEMIC TREATMENT)
     Route: 065
     Dates: start: 202107, end: 202201
  12. RITUXIMAB [Suspect]
     Active Substance: RITUXIMAB
     Indication: Product used for unknown indication
     Route: 065
     Dates: start: 202107, end: 202201
  13. OBINUTUZUMAB [Suspect]
     Active Substance: OBINUTUZUMAB
     Indication: Follicular lymphoma
     Dosage: 1ST LINE SYSTEMIC TREATMENT)
     Route: 042
     Dates: start: 201611, end: 201905
  14. OBINUTUZUMAB [Suspect]
     Active Substance: OBINUTUZUMAB
     Indication: Follicular lymphoma
     Dosage: . (3RD LINE SYSTEMIC TREATMENT)
     Route: 065
     Dates: start: 202201, end: 202202

REACTIONS (3)
  - Malignant neoplasm progression [Unknown]
  - Product use issue [Unknown]
  - Off label use [Unknown]
